FAERS Safety Report 9823608 (Version 3)
Quarter: 2014Q1

REPORT INFORMATION
  Report Type: Report from Study
  Country: US (occurrence: US)
  Receive Date: 20140116
  Receipt Date: 20140130
  Transmission Date: 20141002
  Serious: Yes (Hospitalization)
  Sender: FDA-Public Use
  Company Number: PHEH2014US001064

PATIENT
  Sex: Female
  Weight: 75.74 kg

DRUGS (1)
  1. GILENYA [Suspect]
     Indication: MULTIPLE SCLEROSIS
     Dosage: 0.5 MG, QD
     Route: 048
     Dates: start: 20130405, end: 20140125

REACTIONS (4)
  - Cerebrovascular accident [Not Recovered/Not Resolved]
  - Speech disorder [Not Recovered/Not Resolved]
  - VIIth nerve paralysis [Not Recovered/Not Resolved]
  - Hemiparesis [Not Recovered/Not Resolved]
